FAERS Safety Report 7781771-3 (Version None)
Quarter: 2011Q3

REPORT INFORMATION
  Report Type: 
  Country: None (occurrence: None)
  Receive Date: 20110927
  Receipt Date: 20110919
  Transmission Date: 20111222
  Serious: Yes (Other)
  Sender: FDA-Public Use
  Company Number: US-GLAXOSMITHKLINE-A0945162A

PATIENT
  Sex: Female

DRUGS (4)
  1. HERCEPTIN [Concomitant]
  2. TAXOTERE [Concomitant]
  3. ZOFRAN [Suspect]
     Indication: PROPHYLAXIS OF NAUSEA AND VOMITING
     Dosage: 4MG VARIABLE DOSE
     Route: 048
     Dates: start: 20110201, end: 20110701
  4. CARBOPLATIN [Concomitant]

REACTIONS (9)
  - DIZZINESS [None]
  - ECHOCARDIOGRAM ABNORMAL [None]
  - HYPOTENSION [None]
  - MYOCARDIAL INFARCTION [None]
  - NUCLEAR MAGNETIC RESONANCE IMAGING ABNORMAL [None]
  - SYNCOPE [None]
  - TACHYCARDIA [None]
  - LOSS OF CONSCIOUSNESS [None]
  - CHEST PAIN [None]
